FAERS Safety Report 14259459 (Version 2)
Quarter: 2017Q4

REPORT INFORMATION
  Report Type: Spontaneous
  Country: BR (occurrence: BR)
  Receive Date: 20171207
  Receipt Date: 20171219
  Transmission Date: 20180321
  Serious: Yes (Hospitalization, Other)
  Sender: FDA-Public Use
  Company Number: BR-ALLERGAN-1769560US

PATIENT
  Sex: Female

DRUGS (2)
  1. FOSFOMYCIN TROMETHAMINE - BP [Suspect]
     Active Substance: FOSFOMYCIN TROMETHAMINE
     Indication: OFF LABEL USE
  2. FOSFOMYCIN TROMETHAMINE - BP [Suspect]
     Active Substance: FOSFOMYCIN TROMETHAMINE
     Indication: PYELONEPHRITIS
     Dosage: 3 DF, UNK
     Route: 048

REACTIONS (2)
  - Off label use [Unknown]
  - Pseudomembranous colitis [Recovered/Resolved]
